FAERS Safety Report 6138509-5 (Version None)
Quarter: 2009Q1

REPORT INFORMATION
  Report Type: 
  Country: None (occurrence: None)
  Receive Date: 20090331
  Receipt Date: 20090326
  Transmission Date: 20090719
  Serious: Yes (Hospitalization)
  Sender: FDA-Public Use
  Company Number: US-ELI_LILLY_AND_COMPANY-US200903006678

PATIENT
  Sex: Male

DRUGS (7)
  1. BYETTA [Suspect]
     Indication: DIABETES MELLITUS
     Dosage: 10 UG, 2/D
     Dates: end: 20090322
  2. METFORMIN HCL [Concomitant]
     Dosage: 2000 MG, DAILY (1/D)
  3. LISINOPRIL [Concomitant]
     Dosage: 20 MG, DAILY (1/D)
  4. ASPIRIN [Concomitant]
     Dosage: 81 MG, DAILY (1/D)
  5. NEXIUM [Concomitant]
     Dosage: 40 MG, EACH MORNING
  6. ACTOS [Concomitant]
     Dosage: 30 MG, DAILY (1/D)
  7. LOVASTATIN [Concomitant]
     Dosage: 40 MG, DAILY (1/D)

REACTIONS (1)
  - PANCREATITIS ACUTE [None]
